FAERS Safety Report 17330230 (Version 1)
Quarter: 2020Q1

REPORT INFORMATION
  Report Type: Spontaneous
  Country: US (occurrence: US)
  Receive Date: 20200127
  Receipt Date: 20200127
  Transmission Date: 20200409
  Serious: Yes (Hospitalization)
  Sender: FDA-Public Use
  Company Number: None

PATIENT
  Age: 86 Year
  Sex: Male

DRUGS (8)
  1. LATANOPROST. [Concomitant]
     Active Substance: LATANOPROST
  2. VYNDAQEL [Suspect]
     Active Substance: TAFAMIDIS MEGLUMINE
     Indication: AMYLOIDOSIS
     Route: 048
     Dates: start: 20190910, end: 20200124
  3. AMIODARONE [Concomitant]
     Active Substance: AMIODARONE
  4. ELIQUIS [Concomitant]
     Active Substance: APIXABAN
  5. SPIRONOLACT [Concomitant]
     Active Substance: SPIRONOLACTONE
  6. COMBIGAN [Concomitant]
     Active Substance: BRIMONIDINE TARTRATE\TIMOLOL MALEATE
  7. BUMETANIDE. [Concomitant]
     Active Substance: BUMETANIDE
  8. KLOR-CON M20 [Concomitant]
     Active Substance: POTASSIUM CHLORIDE

REACTIONS (2)
  - Therapy cessation [None]
  - Platelet count decreased [None]

NARRATIVE: CASE EVENT DATE: 20191213
